FAERS Safety Report 24313692 (Version 1)
Quarter: 2024Q3

REPORT INFORMATION
  Report Type: Spontaneous
  Country: US (occurrence: US)
  Receive Date: 20240912
  Receipt Date: 20240912
  Transmission Date: 20241017
  Serious: No
  Sender: FRESENIUS KABI
  Company Number: US-FreseniusKabi-FK202413622

PATIENT
  Age: 67 Year
  Sex: Female

DRUGS (1)
  1. HYDROMORPHONE [Suspect]
     Active Substance: HYDROMORPHONE
     Indication: Product used for unknown indication

REACTIONS (1)
  - Hypersensitivity [Unknown]
